FAERS Safety Report 8664565 (Version 2)
Quarter: 2012Q4

REPORT INFORMATION
  Report Type: Report from Study
  Country: JP (occurrence: JP)
  Receive Date: 20120713
  Receipt Date: 20121231
  Transmission Date: 20130627
  Serious: Yes (Death, Other)
  Sender: FDA-Public Use
  Company Number: JP-009507513-2011SP057769

PATIENT
  Age: 74 Year
  Sex: Female

DRUGS (1)
  1. TEMODAL [Suspect]
     Indication: ANAPLASTIC ASTROCYTOMA
     Dosage: 75 mg/m2, QD
     Route: 048
     Dates: start: 20070717, end: 20070827

REACTIONS (5)
  - Neutrophil count decreased [Recovered/Resolved]
  - White blood cell count decreased [Recovered/Resolved]
  - Disease progression [Fatal]
  - Anaplastic astrocytoma [None]
  - Malignant neoplasm progression [None]
